FAERS Safety Report 7329955-2 (Version None)
Quarter: 2011Q1

REPORT INFORMATION
  Report Type: 
  Country: None (occurrence: None)
  Receive Date: 20110303
  Receipt Date: 20110216
  Transmission Date: 20110831
  Serious: No
  Sender: FDA-Public Use
  Company Number: US-BAYER-201031614NA

PATIENT
  Sex: Female
  Weight: 126.98 kg

DRUGS (14)
  1. YAZ [Suspect]
     Indication: PREMENSTRUAL SYNDROME
     Dosage: UNK
     Route: 048
     Dates: start: 20080508, end: 20080702
  2. FLUOXETINE [Concomitant]
  3. AMBIEN [Concomitant]
  4. DETROL [Concomitant]
  5. GEODON [Concomitant]
  6. XENICAL [Concomitant]
  7. NEXIUM [Concomitant]
  8. LOVENOX [Concomitant]
  9. MECLIZINE [Concomitant]
  10. OXCARBAZEPINE [Concomitant]
  11. YASMIN [Suspect]
     Indication: PREMENSTRUAL SYNDROME
     Route: 048
     Dates: start: 20080508, end: 20080701
  12. PROZAC [Concomitant]
  13. ENALAPRIL MALEATE [Concomitant]
  14. ZIPRASIDONE [Concomitant]

REACTIONS (5)
  - PAIN [None]
  - THROMBOPHLEBITIS SUPERFICIAL [None]
  - THROMBOSIS [None]
  - CHEST PAIN [None]
  - PAIN IN EXTREMITY [None]
